FAERS Safety Report 9727180 (Version 1)
Quarter: 2013Q4

REPORT INFORMATION
  Report Type: Spontaneous
  Country: US (occurrence: US)
  Receive Date: 20131203
  Receipt Date: 20131203
  Transmission Date: 20140711
  Serious: No
  Sender: FDA-Public Use
  Company Number: US-BRISTOL-MYERS SQUIBB COMPANY-19493709

PATIENT
  Age: 62 Year
  Sex: Female
  Weight: 81.18 kg

DRUGS (11)
  1. KOMBIGLYZE XR [Suspect]
     Indication: TYPE 2 DIABETES MELLITUS
     Dosage: 1DF= 2.5/1000MG
  2. ATACAND HCT [Concomitant]
     Dosage: 1DF=16/12.5-UNITS NOS
  3. HCTZ [Concomitant]
  4. NEXIUM [Concomitant]
  5. MULTIVITAMIN [Concomitant]
  6. FLAXSEED [Concomitant]
  7. VITAMIN D [Concomitant]
  8. VITAMIN C [Concomitant]
  9. LECITHIN [Concomitant]
     Dosage: 1DF=1200-UNITS NOS
  10. VITAMIN B12 [Concomitant]
     Route: 060
  11. KELP [Concomitant]

REACTIONS (2)
  - Medication error [Unknown]
  - Blood glucose increased [Unknown]
